FAERS Safety Report 18276247 (Version 1)
Quarter: 2020Q3

REPORT INFORMATION
  Report Type: Spontaneous
  Country: US (occurrence: US)
  Receive Date: 20200917
  Receipt Date: 20200917
  Transmission Date: 20201103
  Serious: No
  Sender: FDA-Public Use
  Company Number: US-009507513-2009USA005776

PATIENT
  Sex: Female

DRUGS (1)
  1. FOSAMAX [Suspect]
     Active Substance: ALENDRONATE SODIUM
     Indication: OSTEOPOROSIS
     Dosage: 70 MG/ONCE WEEKLY
     Route: 048
     Dates: start: 20200801

REACTIONS (2)
  - Jaw clicking [Unknown]
  - Joint noise [Unknown]

NARRATIVE: CASE EVENT DATE: 20200804
